FAERS Safety Report 20607334 (Version 1)
Quarter: 2022Q1

REPORT INFORMATION
  Report Type: Spontaneous
  Country: FR (occurrence: FR)
  Receive Date: 20220317
  Receipt Date: 20220317
  Transmission Date: 20220424
  Serious: Yes (Other)
  Sender: FDA-Public Use
  Company Number: FR-ROCHE-3029773

PATIENT
  Age: 48 Year
  Sex: Male

DRUGS (4)
  1. BEVACIZUMAB [Suspect]
     Active Substance: BEVACIZUMAB
     Indication: Non-small cell lung cancer
     Dosage: 1125 MILLIGRAM, DAY 1 OF CYCLES OF21 DAYS
     Route: 042
     Dates: start: 20210819, end: 20210819
  2. BEVACIZUMAB [Suspect]
     Active Substance: BEVACIZUMAB
     Dosage: 1035 MILLIGRAM, DAY 1 OF CYCLES OF21 DAYS
     Route: 042
     Dates: start: 20210930, end: 20210930
  3. BEVACIZUMAB [Suspect]
     Active Substance: BEVACIZUMAB
     Dosage: 1035 MILLIGRAM, DAY 1 OF CYCLES OF21 DAYS
     Route: 042
     Dates: start: 20211202
  4. ATEZOLIZUMAB [Suspect]
     Active Substance: ATEZOLIZUMAB
     Indication: Non-small cell lung cancer
     Dosage: 1200 MILLIGRAM, DAY 1 OF CYCLES OF21 DAYS
     Route: 041
     Dates: start: 20210819, end: 20210819

REACTIONS (1)
  - Hyperthyroidism [Recovered/Resolved]

NARRATIVE: CASE EVENT DATE: 20211223
